FAERS Safety Report 11559296 (Version 2)
Quarter: 2015Q4

REPORT INFORMATION
  Report Type: Report from Study
  Country: AU (occurrence: AU)
  Receive Date: 20150928
  Receipt Date: 20151012
  Transmission Date: 20160304
  Serious: Yes (Death)
  Sender: FDA-Public Use
  Company Number: PHHY2015AU115677

PATIENT
  Age: 59 Year
  Sex: Female

DRUGS (1)
  1. MYFORTIC [Suspect]
     Active Substance: MYCOPHENOLATE SODIUM
     Indication: SYSTEMIC LUPUS ERYTHEMATOSUS
     Dosage: 540 MG, BID
     Route: 048
     Dates: start: 201310, end: 201312

REACTIONS (1)
  - Death [Fatal]

NARRATIVE: CASE EVENT DATE: 20131227
